FAERS Safety Report 15965593 (Version 2)
Quarter: 2019Q2

REPORT INFORMATION
  Report Type: Spontaneous
  Country: US (occurrence: US)
  Receive Date: 20190215
  Receipt Date: 20190515
  Transmission Date: 20190711
  Serious: No
  Sender: FDA-Public Use
  Company Number: US-RIGEL PHARMACEUTICALS, INC.-2018FOS000266

PATIENT

DRUGS (3)
  1. TAVALISSE [Suspect]
     Active Substance: FOSTAMATINIB
     Indication: CHRONIC LYMPHOCYTIC LEUKAEMIA
     Dosage: 100 MG, BID
     Route: 048
  2. TAVALISSE [Suspect]
     Active Substance: FOSTAMATINIB
     Indication: HAEMOLYTIC ANAEMIA
     Dosage: 150 MG, BID
     Route: 048
     Dates: start: 20181222
  3. TAVALISSE [Suspect]
     Active Substance: FOSTAMATINIB
     Dosage: 75 MG, BID
     Route: 048

REACTIONS (5)
  - Hypertension [Unknown]
  - Diarrhoea [Unknown]
  - Sinusitis [Unknown]
  - Incorrect dose administered [Unknown]
  - Off label use [Unknown]
